FAERS Safety Report 4738657-8 (Version None)
Quarter: 2005Q3

REPORT INFORMATION
  Report Type: 
  Country: None (occurrence: None)
  Receive Date: 20050808
  Receipt Date: 20050808
  Transmission Date: 20060218
  Serious: Yes (Other)
  Sender: FDA-Public Use
  Company Number: None

PATIENT
  Sex: Male
  Weight: 109.7705 kg

DRUGS (6)
  1. FLUVASTATIN SODIUM (LESCOL) CAPSULES [Suspect]
     Indication: CORONARY ARTERY DISEASE
     Dosage: 20MG PO DAILY QHS
     Route: 048
     Dates: start: 20050507, end: 20050608
  2. FLUVASTATIN SODIUM (LESCOL) CAPSULES [Suspect]
     Indication: LIPIDS INCREASED
     Dosage: 20MG PO DAILY QHS
     Route: 048
     Dates: start: 20050507, end: 20050608
  3. ATORVASTATIN CALCIUM [Concomitant]
  4. ETODOLAC [Concomitant]
  5. FLUOXETINE [Concomitant]
  6. METOPROLOL [Concomitant]

REACTIONS (2)
  - ARTHRALGIA [None]
  - SWELLING [None]
